FAERS Safety Report 19195310 (Version 2)
Quarter: 2021Q2

REPORT INFORMATION
  Report Type: Report from Study
  Country: GB (occurrence: GB)
  Receive Date: 20210429
  Receipt Date: 20210504
  Transmission Date: 20210717
  Serious: Yes (Hospitalization, Other)
  Sender: FDA-Public Use
  Company Number: GB-JNJFOC-20210405284

PATIENT
  Sex: Male

DRUGS (2)
  1. STELARA [Suspect]
     Active Substance: USTEKINUMAB
     Indication: COLITIS ULCERATIVE
  2. STELARA [Suspect]
     Active Substance: USTEKINUMAB
     Indication: CROHN^S DISEASE
     Route: 058

REACTIONS (7)
  - Respiratory rate increased [Unknown]
  - Heart rate increased [Recovered/Resolved]
  - Perineal abscess [Unknown]
  - Hospitalisation [Unknown]
  - Malaise [Unknown]
  - Blood pressure increased [Unknown]
  - Pyrexia [Unknown]
